FAERS Safety Report 12732808 (Version 1)
Quarter: 2016Q3

REPORT INFORMATION
  Report Type: Spontaneous
  Country: US (occurrence: US)
  Receive Date: 20160910
  Receipt Date: 20160910
  Transmission Date: 20161109
  Serious: No
  Sender: FDA-Public Use
  Company Number: None

PATIENT
  Age: 56 Year
  Sex: Female
  Weight: 58.05 kg

DRUGS (9)
  1. ZYRTEX [Concomitant]
  2. XOPENEX [Concomitant]
     Active Substance: LEVALBUTEROL HYDROCHLORIDE
  3. VAGIFEM [Concomitant]
     Active Substance: ESTRADIOL
  4. VIT D AND CALCIUM [Concomitant]
  5. BABY ASPIRIN [Concomitant]
     Active Substance: ASPIRIN
  6. NASONEX [Concomitant]
     Active Substance: MOMETASONE FUROATE
  7. CHLONAZEPAM [Concomitant]
  8. RALOXIFENE. [Suspect]
     Active Substance: RALOXIFENE
     Indication: OSTEOPENIA
     Route: 048
     Dates: start: 20160601, end: 20160728
  9. OMEPRAZOLE. [Concomitant]
     Active Substance: OMEPRAZOLE

REACTIONS (1)
  - Migraine with aura [None]

NARRATIVE: CASE EVENT DATE: 20160728
